FAERS Safety Report 4357018-7 (Version None)
Quarter: 2004Q2

REPORT INFORMATION
  Report Type: 
  Country: None (occurrence: None)
  Receive Date: 20040510
  Receipt Date: 20040422
  Transmission Date: 20050107
  Serious: Yes (Hospitalization)
  Sender: FDA-Public Use
  Company Number: DSA_24304_2004

PATIENT
  Age: 67 Year
  Sex: Female

DRUGS (15)
  1. LORAZEPAM [Suspect]
     Dosage: 1 MG QD PO
     Route: 048
     Dates: start: 20000619, end: 20000625
  2. LORAZEPAM [Suspect]
     Dosage: 0.5 MG QD PO
     Route: 048
     Dates: start: 20000626
  3. LORAZEPAM [Suspect]
     Dosage: 2 MG QD PO
     Route: 048
     Dates: start: 20000508, end: 20000618
  4. EUNERPAN [Suspect]
     Dosage: 50 MG QD PO
     Route: 048
     Dates: start: 20000620
  5. EUNERPAN [Suspect]
     Dosage: 200 MG QD PO
     Route: 048
     Dates: start: 20000614, end: 20000619
  6. EUNERPAN [Suspect]
     Dosage: 250 MG Q DAY PO
     Route: 048
     Dates: start: 20000605, end: 20000613
  7. HYPNOREX [Suspect]
     Dosage: 600 MG QD PO
     Route: 048
  8. LITHIUM CARBONATE [Suspect]
     Dosage: 400 MG QD PO
     Route: 048
     Dates: start: 20000530
  9. ORFIRIL [Suspect]
     Dosage: 1200 MG QD PO
     Route: 048
     Dates: start: 20000617, end: 20000625
  10. ORFIRIL [Suspect]
     Dosage: 600 MG QD PO
     Route: 048
     Dates: start: 20000626, end: 20000626
  11. VALPROATE SODIUM [Suspect]
     Dosage: 900 MG QD PO
     Route: 048
     Dates: start: 20000615, end: 20000616
  12. ORFIRIL [Suspect]
     Dosage: 600 MG QD PO
     Route: 048
     Dates: start: 20000613, end: 20000614
  13. ORFIRIL [Suspect]
     Dosage: 300 MG QD PO
     Route: 048
     Dates: start: 20000612, end: 20000612
  14. TIMONIL [Suspect]
     Dosage: 600 MG QD PO
     Route: 048
  15. L-THYROXIN [Concomitant]

REACTIONS (9)
  - ASTHENIA [None]
  - DEPRESSED LEVEL OF CONSCIOUSNESS [None]
  - DRUG INTERACTION [None]
  - ELECTROENCEPHALOGRAM ABNORMAL [None]
  - FATIGUE [None]
  - GAIT DISTURBANCE [None]
  - MEMORY IMPAIRMENT [None]
  - MENTAL RETARDATION SEVERITY UNSPECIFIED [None]
  - SEDATION [None]
